FAERS Safety Report 13988946 (Version 1)
Quarter: 2017Q3

REPORT INFORMATION
  Report Type: Spontaneous
  Country: US (occurrence: US)
  Receive Date: 20170919
  Receipt Date: 20170919
  Transmission Date: 20171128
  Serious: Yes (Other)
  Sender: FDA-Public Use
  Company Number: None

PATIENT
  Age: 37 Year
  Sex: Female

DRUGS (1)
  1. MARCAINE [Suspect]
     Active Substance: BUPIVACAINE HYDROCHLORIDE
     Indication: FEMALE STERILISATION
     Dosage: ?          OTHER FREQUENCY:ONCE;?
     Route: 008

REACTIONS (1)
  - Feeling abnormal [None]

NARRATIVE: CASE EVENT DATE: 20170918
